FAERS Safety Report 8577684-X (Version None)
Quarter: 2012Q3

REPORT INFORMATION
  Report Type: 
  Country: None (occurrence: None)
  Receive Date: 20120807
  Receipt Date: 20120802
  Transmission Date: 20120928
  Serious: Yes (Death, Hospitalization, Other)
  Sender: FDA-Public Use
  Company Number: DE-ALLERGAN-1207780US

PATIENT
  Age: 56 Year
  Sex: Male

DRUGS (2)
  1. BOTULINUM TOXIN TYPE A [Suspect]
     Dosage: 345 UNK, UNK
     Dates: start: 20110722, end: 20110722
  2. BOTULINUM TOXIN TYPE A [Suspect]
     Indication: HEMIPARESIS
     Dosage: 285 UNITS, SINGLE
     Dates: start: 20111111, end: 20111111

REACTIONS (10)
  - PNEUMONIA ASPIRATION [None]
  - CACHEXIA [None]
  - URINARY TRACT INFECTION [None]
  - BACTERAEMIA [None]
  - HYPOKALAEMIA [None]
  - STATUS EPILEPTICUS [None]
  - TYPE 2 DIABETES MELLITUS [None]
  - HYPERTENSION [None]
  - DYSPNOEA [None]
  - ENTERITIS [None]
